FAERS Safety Report 9628786 (Version 2)
Quarter: 2013Q4

REPORT INFORMATION
  Report Type: Report from Study
  Country: RU (occurrence: RU)
  Receive Date: 20131017
  Receipt Date: 20131024
  Transmission Date: 20140711
  Serious: Yes (Other)
  Sender: FDA-Public Use
  Company Number: RU-ASTELLAS-2013EU008832

PATIENT
  Age: 24 Year
  Sex: Male
  Weight: 61 kg

DRUGS (2)
  1. TACROLIMUS MR4 CAPSULES [Suspect]
     Indication: RENAL TRANSPLANT
     Dosage: 13 MG, UID/QD
     Route: 048
     Dates: start: 20130907, end: 20130925
  2. MERONEN [Concomitant]
     Indication: WOUND ABSCESS
     Dosage: 1000 MG, UID/QD
     Route: 042
     Dates: start: 20130930

REACTIONS (3)
  - Wound abscess [Not Recovered/Not Resolved]
  - Extravasation of urine [Not Recovered/Not Resolved]
  - Ureteral necrosis [Not Recovered/Not Resolved]
